FAERS Safety Report 9039482 (Version 1)
Quarter: 2013Q1

REPORT INFORMATION
  Report Type: Spontaneous
  Country: US (occurrence: None)
  Receive Date: 20130123
  Receipt Date: 20130123
  Transmission Date: 20140127
  Serious: Yes (Other)
  Sender: FDA-Public Use
  Company Number: None

PATIENT
  Age: 77 Year
  Sex: Female
  Weight: 89.36 kg

DRUGS (1)
  1. XARELTO 20 MG JANSSEN [Suspect]
     Indication: ATRIAL FIBRILLATION
     Dosage: 20 MG DAILY PO
     Route: 048
     Dates: start: 20121106, end: 20121217

REACTIONS (4)
  - Renal failure [None]
  - Fatigue [None]
  - Asthenia [None]
  - Malaise [None]
